FAERS Safety Report 6435392-5 (Version None)
Quarter: 2009Q4

REPORT INFORMATION
  Report Type: 
  Country: None (occurrence: None)
  Receive Date: 20091106
  Receipt Date: 20091022
  Transmission Date: 20100525
  Serious: Yes (Death, Hospitalization)
  Sender: FDA-Public Use
  Company Number: 2009003241

PATIENT
  Age: 61 Year
  Sex: Male

DRUGS (1)
  1. TARCEVA [Suspect]
     Indication: NON-SMALL CELL LUNG CANCER
     Dosage: (150 MG),ORAL
     Route: 048

REACTIONS (6)
  - DRUG INEFFECTIVE [None]
  - HEPATIC ENZYME ABNORMAL [None]
  - HYPERTENSION [None]
  - MALIGNANT NEOPLASM PROGRESSION [None]
  - NON-SMALL CELL LUNG CANCER [None]
  - VOMITING [None]
